FAERS Safety Report 6578784-6 (Version None)
Quarter: 2010Q1

REPORT INFORMATION
  Report Type: 
  Country: None (occurrence: None)
  Receive Date: 20100202
  Receipt Date: 20100118
  Transmission Date: 20100710
  Serious: Yes (Life-Threatening, Hospitalization, Other)
  Sender: FDA-Public Use
  Company Number: 486073

PATIENT
  Age: 65 Year
  Sex: Female

DRUGS (5)
  1. EPIRUBICIN [Suspect]
     Indication: BREAST CANCER
     Dates: start: 20060601, end: 20061001
  2. CYCLOPHOSPHAMIDE [Suspect]
     Indication: BREAST CANCER
     Dates: start: 20060601, end: 20061001
  3. FLUOROURACIL [Concomitant]
  4. LETROZOLE [Concomitant]
  5. TAXOTERE [Concomitant]

REACTIONS (2)
  - COMA [None]
  - PROGRESSIVE MULTIFOCAL LEUKOENCEPHALOPATHY [None]
